FAERS Safety Report 16587450 (Version 1)
Quarter: 2019Q3

REPORT INFORMATION
  Report Type: Spontaneous
  Country: US (occurrence: US)
  Receive Date: 20190717
  Receipt Date: 20190717
  Transmission Date: 20191004
  Serious: No
  Sender: FDA-Public Use
  Company Number: US-JNJFOC-20190703857

PATIENT
  Sex: Female

DRUGS (5)
  1. USTEKINUMAB SOLUTION FOR INJECTION IN PRE-FILLED SYRINGE [Suspect]
     Active Substance: USTEKINUMAB
     Route: 058
  2. BUDESONIDE. [Concomitant]
     Active Substance: BUDESONIDE
  3. SYNTHROID [Concomitant]
     Active Substance: LEVOTHYROXINE SODIUM
  4. ATENOLOL. [Concomitant]
     Active Substance: ATENOLOL
  5. USTEKINUMAB SOLUTION FOR INJECTION IN PRE-FILLED SYRINGE [Suspect]
     Active Substance: USTEKINUMAB
     Indication: CROHN^S DISEASE
     Route: 042
     Dates: start: 2019

REACTIONS (1)
  - Headache [Not Recovered/Not Resolved]
